FAERS Safety Report 10535590 (Version 1)
Quarter: 2014Q4

REPORT INFORMATION
  Report Type: Spontaneous
  Country: US (occurrence: US)
  Receive Date: 20141022
  Receipt Date: 20141022
  Transmission Date: 20150529
  Serious: No
  Sender: FDA-Public Use
  Company Number: US-RECKITT BENCKISER PHARMACEUTICAL, INC-RB-58877-2013

PATIENT

DRUGS (3)
  1. SUBOXONE [Suspect]
     Active Substance: BUPRENORPHINE HYDROCHLORIDE\NALOXONE HYDROCHLORIDE
     Dosage: TOOK 4 MG
     Route: 060
     Dates: start: 20130921
  2. SUBOXONE [Suspect]
     Active Substance: BUPRENORPHINE HYDROCHLORIDE\NALOXONE HYDROCHLORIDE
     Dosage: SUBOXONE FILM
     Route: 060
     Dates: end: 20130917
  3. SUBOXONE [Suspect]
     Active Substance: BUPRENORPHINE HYDROCHLORIDE\NALOXONE HYDROCHLORIDE
     Indication: DRUG DEPENDENCE
     Dosage: SUBOXONE FILM; VARYING DOSES FROM 16 TO 4 MG DAILY
     Route: 060
     Dates: start: 2011

REACTIONS (8)
  - Drug withdrawal syndrome [Recovered/Resolved]
  - Tremor [Recovered/Resolved]
  - Feeling abnormal [Not Recovered/Not Resolved]
  - Drug dependence [Not Recovered/Not Resolved]
  - Insomnia [Recovered/Resolved]
  - Gastrooesophageal reflux disease [Not Recovered/Not Resolved]
  - Underdose [Recovered/Resolved]
  - Muscle contractions involuntary [Recovered/Resolved]

NARRATIVE: CASE EVENT DATE: 20130917
